FAERS Safety Report 21647981 (Version 1)
Quarter: 2022Q4

REPORT INFORMATION
  Report Type: Spontaneous
  Country: PL (occurrence: None)
  Receive Date: 20221128
  Receipt Date: 20221128
  Transmission Date: 20230112
  Serious: Yes (Other)
  Sender: FDA-Public Use
  Company Number: PL-ROCHE-3225247

PATIENT
  Age: 62 Year
  Sex: Female

DRUGS (1)
  1. TECENTRIQ [Suspect]
     Active Substance: ATEZOLIZUMAB
     Indication: Non-small cell lung cancer
     Dosage: 1 CYCLE OF ATEZOLIZUMAB IMMUNOTHERAPY WAS ADMINISTERED. CYCLE 6, 9, 13, 22, 25, 34, 42, / 2.5YEARS O
     Route: 041
     Dates: start: 20191121

REACTIONS (1)
  - Lung cancer metastatic [Unknown]

NARRATIVE: CASE EVENT DATE: 20220429
